FAERS Safety Report 10238769 (Version 1)
Quarter: 2014Q2

REPORT INFORMATION
  Report Type: Spontaneous
  Country: US (occurrence: None)
  Receive Date: 20140613
  Receipt Date: 20140613
  Transmission Date: 20141212
  Serious: No
  Sender: FDA-Public Use
  Company Number: None

PATIENT
  Age: 93 Year
  Sex: Male
  Weight: 68.04 kg

DRUGS (12)
  1. WARFARIN N-A. 2 MGM TAB GOLDEN STATE [Suspect]
     Indication: ATRIAL FIBRILLATION
     Dosage: THERAPY DATE?MANY YEARS AGO STILL TAKING?DOSAGE?TABLET ONE @ 500PM?P.O.
     Route: 048
  2. GLIPIZIDE [Concomitant]
  3. MEMANTINE HCL [Concomitant]
  4. CLONZEPAM [Concomitant]
  5. RESPERIDONE [Concomitant]
  6. DIGOXIN [Concomitant]
  7. TERAZOSIN HCL [Concomitant]
  8. K-DUR [Concomitant]
  9. LASIX [Concomitant]
  10. MULTI [Concomitant]
  11. CALCIUM [Concomitant]
  12. VIT D [Concomitant]

REACTIONS (1)
  - Haematuria [None]
